FAERS Safety Report 21741166 (Version 1)
Quarter: 2022Q4

REPORT INFORMATION
  Report Type: Spontaneous
  Country: US (occurrence: None)
  Receive Date: 20221215
  Receipt Date: 20221215
  Transmission Date: 20230112
  Serious: Yes (Death)
  Sender: FDA-Public Use
  Company Number: None

PATIENT
  Age: 90 Year
  Sex: Female

DRUGS (1)
  1. COSENTYX [Suspect]
     Active Substance: SECUKINUMAB
     Dosage: OTHER FREQUENCY : Q28 DAYS;?
     Route: 058
     Dates: end: 20221121

REACTIONS (1)
  - Death [None]

NARRATIVE: CASE EVENT DATE: 20221121
